FAERS Safety Report 13377175 (Version 1)
Quarter: 2017Q1

REPORT INFORMATION
  Report Type: Spontaneous
  Country: US (occurrence: US)
  Receive Date: 20170328
  Receipt Date: 20170328
  Transmission Date: 20170429
  Serious: Yes (Other)
  Sender: FDA-Public Use
  Company Number: US-MYLANLABS-2017M1018257

PATIENT

DRUGS (2)
  1. THIOTHIXENE CAPSULES, USP [Suspect]
     Active Substance: THIOTHIXENE
     Indication: SCHIZOPHRENIA
     Dosage: 4 MG, HS
     Route: 048
     Dates: start: 2015
  2. LEVOTHYROXINE SODIUM. [Concomitant]
     Active Substance: LEVOTHYROXINE SODIUM
     Indication: HYPOTHYROIDISM
     Dosage: 100 ?G, QD
     Route: 048
     Dates: start: 2014

REACTIONS (1)
  - Drug effect decreased [Not Recovered/Not Resolved]

NARRATIVE: CASE EVENT DATE: 2017
